FAERS Safety Report 17751634 (Version 2)
Quarter: 2020Q3

REPORT INFORMATION
  Report Type: Spontaneous
  Country: US (occurrence: US)
  Receive Date: 20200506
  Receipt Date: 20200819
  Transmission Date: 20201102
  Serious: No
  Sender: FDA-Public Use
  Company Number: US-PFIZER INC-2020179112

PATIENT
  Sex: Female
  Weight: 85 kg

DRUGS (1)
  1. EFFEXOR [Suspect]
     Active Substance: VENLAFAXINE HYDROCHLORIDE
     Dosage: UNK, 1X/DAY
     Route: 048
     Dates: start: 200105

REACTIONS (4)
  - Post-traumatic stress disorder [Unknown]
  - Taste disorder [Unknown]
  - Drug ineffective [Unknown]
  - Dysphagia [Unknown]
